FAERS Safety Report 4919776-X (Version None)
Quarter: 2006Q1

REPORT INFORMATION
  Report Type: 
  Country: None (occurrence: None)
  Receive Date: 20060216
  Receipt Date: 20060206
  Transmission Date: 20060701
  Serious: Yes (Hospitalization)
  Sender: FDA-Public Use
  Company Number: CIP06000306

PATIENT
  Age: 77 Year
  Sex: Female

DRUGS (5)
  1. DANTRIUM [Suspect]
     Indication: EPILEPSY
     Dosage: 25 MG DAILY, ORAL
     Route: 048
     Dates: end: 20050511
  2. ZONISAMIDE [Suspect]
     Indication: EPILEPSY
     Dosage: 100 MG THREE TIMES DAILY, ORAL
     Route: 048
     Dates: start: 20050420, end: 20050629
  3. GASMOTIN(MOSAPRIDE CITRATE) [Suspect]
     Indication: ILEUS
     Dosage: 5 MG THREE TIMES DAILY, ORAL
     Route: 048
     Dates: start: 20050527, end: 20050617
  4. PRIMPERAN TAB [Suspect]
     Indication: ILEUS
     Dosage: 5 MG THREE TIMES DAILY, ORAL
     Route: 048
     Dates: start: 20050531, end: 20050617
  5. TEGRETOL [Concomitant]

REACTIONS (4)
  - DRUG INTERACTION [None]
  - ILEUS PARALYTIC [None]
  - NAUSEA [None]
  - VOMITING [None]
